FAERS Safety Report 4822099-0 (Version None)
Quarter: 2005Q4

REPORT INFORMATION
  Report Type: 
  Country: None (occurrence: None)
  Receive Date: 20051103
  Receipt Date: 20051013
  Transmission Date: 20060501
  Serious: Yes (Life-Threatening, Hospitalization)
  Sender: FDA-Public Use
  Company Number: DE_050917042

PATIENT
  Age: 55 Year
  Sex: Male

DRUGS (6)
  1. ALIMTA [Suspect]
     Indication: PLEURAL MESOTHELIOMA MALIGNANT
     Dosage: 500 MG/M2
     Dates: start: 20050829, end: 20050901
  2. FOLIC ACID [Concomitant]
  3. VITAMIN B-12 [Concomitant]
  4. DEXAMETHASON (DEXAMETHASONE SODIUM PHOSPHATE) [Concomitant]
  5. NOVALGIN (METAMIZOLE SODIUM MONOHYDRATE) [Concomitant]
  6. OPIAT [Concomitant]

REACTIONS (8)
  - ATRIAL FLUTTER [None]
  - METASTASES TO BONE [None]
  - METASTASES TO DIAPHRAGM [None]
  - METASTASES TO HEART [None]
  - METASTASES TO LIVER [None]
  - METASTASES TO LUNG [None]
  - NEOPLASM PROGRESSION [None]
  - VENTRICULAR EXTRASYSTOLES [None]
